FAERS Safety Report 4520199-6 (Version None)
Quarter: 2004Q4

REPORT INFORMATION
  Report Type: 
  Country: None (occurrence: None)
  Receive Date: 20041025
  Receipt Date: 20040412
  Transmission Date: 20050328
  Serious: Yes (Hospitalization)
  Sender: FDA-Public Use
  Company Number: 2004-BP-02830BP

PATIENT
  Age: 91 Year
  Sex: Female

DRUGS (5)
  1. COMBIVENT [Suspect]
     Dosage: 8 PUF (SEE TEXT, 2 PUFFS 06H), IH
     Route: 055
     Dates: start: 20040408
  2. LOMOTIL [Concomitant]
  3. VERAPMAIL (VERAPAMIL) [Concomitant]
  4. ALLOPURINOL [Concomitant]
  5. ADVAIR (SERETIDE MITE) [Concomitant]

REACTIONS (1)
  - DYSPNOEA [None]
